FAERS Safety Report 8269700-X (Version None)
Quarter: 2012Q2

REPORT INFORMATION
  Report Type: 
  Country: None (occurrence: None)
  Receive Date: 20120405
  Receipt Date: 20120322
  Transmission Date: 20120825
  Serious: Yes (Other)
  Sender: FDA-Public Use
  Company Number: 12-235

PATIENT
  Age: 37 Year
  Sex: Male
  Weight: 68 kg

DRUGS (3)
  1. LISINOPRIL [Concomitant]
  2. NAPROXEN SODIUM [Suspect]
     Indication: ANALGESIC THERAPY
     Dosage: ORAL
     Route: 048
     Dates: start: 20120312, end: 20120321
  3. HYDROCHLOROTHIAZIDE [Concomitant]

REACTIONS (3)
  - BLOOD URINE PRESENT [None]
  - ERECTILE DYSFUNCTION [None]
  - LIGAMENT RUPTURE [None]
